FAERS Safety Report 15995131 (Version 8)
Quarter: 2019Q2

REPORT INFORMATION
  Report Type: Spontaneous
  Country: US (occurrence: US)
  Receive Date: 20190222
  Receipt Date: 20190611
  Transmission Date: 20190711
  Serious: Yes (Hospitalization, Other)
  Sender: FDA-Public Use
  Company Number: PHEH2019US007358

PATIENT
  Sex: Male

DRUGS (3)
  1. AFINITOR [Suspect]
     Active Substance: EVEROLIMUS
     Indication: RENAL CANCER
     Dosage: 5 MG, QD
     Route: 048
  2. LENVATINIB [Suspect]
     Active Substance: LENVATINIB
     Dosage: 10 MG, QD
     Route: 048
  3. LENVATINIB [Suspect]
     Active Substance: LENVATINIB
     Indication: RENAL CANCER
     Dosage: 18 MG, QD
     Route: 048

REACTIONS (11)
  - Diarrhoea [Recovered/Resolved]
  - Clostridium difficile colitis [Unknown]
  - Dehydration [Unknown]
  - Blood pressure fluctuation [Not Recovered/Not Resolved]
  - Joint swelling [Recovered/Resolved]
  - Peripheral swelling [Recovered/Resolved]
  - Blood pressure decreased [Not Recovered/Not Resolved]
  - Pruritus [Recovering/Resolving]
  - Hepatic neoplasm [Recovering/Resolving]
  - Dyspepsia [Recovered/Resolved]
  - Hypertension [Unknown]
